FAERS Safety Report 9174855 (Version 2)
Quarter: 2013Q1

REPORT INFORMATION
  Report Type: Spontaneous
  Country: SE (occurrence: SE)
  Receive Date: 20130320
  Receipt Date: 20130327
  Transmission Date: 20140127
  Serious: Yes (Other)
  Sender: FDA-Public Use
  Company Number: SE-NICOBRDEVP-2013-04402

PATIENT
  Age: 54 Year
  Sex: Female

DRUGS (4)
  1. MIRTAZAPINE (UNKNOWN) [Suspect]
     Indication: DEPRESSION
     Dosage: 30 MG, DAILY
     Route: 048
     Dates: start: 20130210, end: 20130228
  2. MIRTAZAPINE (UNKNOWN) [Suspect]
     Dosage: 15 MG, UNKNOWN
     Route: 048
     Dates: start: 20130131, end: 20130209
  3. STILNOCT [Concomitant]
     Indication: SLEEP DISORDER
     Dosage: TAKEN OCCASIONALLY, UNK
     Route: 065
  4. THERALEN [Concomitant]
     Indication: SLEEP DISORDER
     Dosage: TAKEN OCCASIONALLY, UNK
     Route: 065

REACTIONS (2)
  - Hypoaesthesia [Recovering/Resolving]
  - Genital discomfort [Recovering/Resolving]
